FAERS Safety Report 6621763-0 (Version None)
Quarter: 2010Q1

REPORT INFORMATION
  Report Type: 
  Country: None (occurrence: None)
  Receive Date: 20100223
  Receipt Date: 20091213
  Transmission Date: 20100710
  Serious: No
  Sender: FDA-Public Use
  Company Number: 003051

PATIENT
  Sex: Male
  Weight: 53.9 kg

DRUGS (6)
  1. CIMZIA [Suspect]
     Indication: CROHN'S DISEASE
     Dosage: 400 MG Q28D SUBCUTANEOUS
     Route: 058
     Dates: start: 20090731
  2. PREDNISONE [Concomitant]
  3. AZATHIOPRINE [Concomitant]
  4. PANTOPRAZOLE [Concomitant]
  5. HYDROCODONE BITARTRATE AND ACETAMINOPHEN [Concomitant]
  6. ALAVERT [Concomitant]

REACTIONS (2)
  - FLUSHING [None]
  - NIGHT SWEATS [None]
